FAERS Safety Report 20209035 (Version 2)
Quarter: 2022Q1

REPORT INFORMATION
  Report Type: Report from Study
  Country: US (occurrence: US)
  Receive Date: 20211220
  Receipt Date: 20220119
  Transmission Date: 20220423
  Serious: Yes (Other)
  Sender: FDA-Public Use
  Company Number: US-PFIZER INC-202101763110

PATIENT
  Age: 74 Year
  Sex: Male
  Weight: 77.7 kg

DRUGS (1)
  1. PALBOCICLIB [Suspect]
     Active Substance: PALBOCICLIB
     Indication: Sarcoma
     Dosage: 125 MG, CYCLE: 28 DAYS, QD ON DAYS 1-21
     Route: 048
     Dates: start: 20180924, end: 20190122

REACTIONS (1)
  - Hypophosphataemia [Not Recovered/Not Resolved]

NARRATIVE: CASE EVENT DATE: 20190129
